FAERS Safety Report 18666215 (Version 1)
Quarter: 2020Q4

REPORT INFORMATION
  Report Type: Spontaneous
  Country: US (occurrence: US)
  Receive Date: 20201226
  Receipt Date: 20201226
  Transmission Date: 20210114
  Serious: Yes (Other)
  Sender: FDA-Public Use
  Company Number: NVSC2020US338661

PATIENT
  Sex: Female
  Weight: 62.6 kg

DRUGS (1)
  1. CEFAZOLIN [Suspect]
     Active Substance: CEFAZOLIN
     Indication: PRODUCT USED FOR UNKNOWN INDICATION
     Dosage: UNK
     Route: 065
     Dates: start: 2015

REACTIONS (3)
  - Overweight [Unknown]
  - Respiratory arrest [Unknown]
  - Anaphylactic shock [Unknown]
